FAERS Safety Report 6031692-1 (Version None)
Quarter: 2008Q4

REPORT INFORMATION
  Report Type: 
  Country: None (occurrence: None)
  Receive Date: 20081224
  Receipt Date: 20080616
  Transmission Date: 20090506
  Serious: Yes (Other)
  Sender: FDA-Public Use
  Company Number: FEI2008-1141

PATIENT
  Age: 33 Year
  Sex: Female
  Weight: 91.8534 kg

DRUGS (3)
  1. PARAGARD T 380A [Suspect]
     Indication: CONTRACEPTION
     Dosage: INTRA-UTERINE
     Route: 015
     Dates: start: 20070615, end: 20080205
  2. DAYQUIL (VICKS FORMULA 44M) [Concomitant]
  3. NYQUIL (MEDINITE) [Concomitant]

REACTIONS (3)
  - ABORTION SPONTANEOUS [None]
  - UNINTENDED PREGNANCY [None]
  - UTERINE HAEMORRHAGE [None]
